FAERS Safety Report 15484515 (Version 1)
Quarter: 2018Q4

REPORT INFORMATION
  Report Type: Spontaneous
  Country: US (occurrence: US)
  Receive Date: 20181010
  Receipt Date: 20181010
  Transmission Date: 20190205
  Serious: No
  Sender: FDA-Public Use
  Company Number: US-ROMARKLABS-2018-US-000030

PATIENT
  Age: 82 Year
  Sex: Female

DRUGS (1)
  1. ALINIA [Suspect]
     Active Substance: NITAZOXANIDE
     Indication: ABDOMINAL DISTENSION
     Dosage: 1 TABLET TWICE DAILY
     Route: 048
     Dates: start: 20160815

REACTIONS (2)
  - Flushing [Unknown]
  - Skin warm [Unknown]

NARRATIVE: CASE EVENT DATE: 20160815
